FAERS Safety Report 11716119 (Version 2)
Quarter: 2015Q4

REPORT INFORMATION
  Report Type: Spontaneous
  Country: US (occurrence: US)
  Receive Date: 20151104
  Receipt Date: 20151110
  Transmission Date: 20160304
  Serious: No
  Sender: FDA-Public Use
  Company Number: US-ELI_LILLY_AND_COMPANY-US201108002055

PATIENT
  Age: 67 Year
  Sex: Female

DRUGS (1)
  1. FORTEO [Suspect]
     Active Substance: TERIPARATIDE
     Indication: OSTEOPOROSIS
     Dosage: UNK UNK, UNKNOWN

REACTIONS (6)
  - Bronchitis [Unknown]
  - Speech disorder [Unknown]
  - Sinusitis [Unknown]
  - Memory impairment [Unknown]
  - Nasal congestion [Unknown]
  - Fall [Recovered/Resolved]
